FAERS Safety Report 9751467 (Version 2)
Quarter: 2014Q1

REPORT INFORMATION
  Report Type: Spontaneous
  Country: BR (occurrence: BR)
  Receive Date: 20131212
  Receipt Date: 20140106
  Transmission Date: 20141002
  Serious: Yes (Other)
  Sender: FDA-Public Use
  Company Number: CHPA2013BR018135

PATIENT
  Sex: Female
  Weight: 49 kg

DRUGS (2)
  1. CIBALENAA [Suspect]
     Indication: HEADACHE
     Dosage: 1 DF, QD PRN
  2. CORTICOSTEROIDS [Concomitant]

REACTIONS (3)
  - Asthma [Recovered/Resolved]
  - Disease recurrence [Recovered/Resolved]
  - Abdominal pain upper [Unknown]
